FAERS Safety Report 5109973-5 (Version None)
Quarter: 2006Q3

REPORT INFORMATION
  Report Type: 
  Country: None (occurrence: None)
  Receive Date: 20060921
  Receipt Date: 20060911
  Transmission Date: 20061208
  Serious: Yes (Hospitalization)
  Sender: FDA-Public Use
  Company Number: SE-JNJFOC-20060903348

PATIENT
  Age: 41 Year
  Sex: Female

DRUGS (4)
  1. HALDOL SOLUTAB [Suspect]
     Indication: DRUG USE FOR UNKNOWN INDICATION
     Dosage: 70-70 TABLETS
     Route: 048
  2. LITHIUM CARBONATE [Concomitant]
  3. CISORDINOL [Concomitant]
  4. NITRAZEPAM [Concomitant]

REACTIONS (7)
  - HALLUCINATION [None]
  - HALLUCINATION, VISUAL [None]
  - POISONING [None]
  - SUBDURAL HAEMATOMA [None]
  - SUICIDE ATTEMPT [None]
  - VENTRICULAR EXTRASYSTOLES [None]
  - VENTRICULAR TACHYCARDIA [None]
